FAERS Safety Report 15972654 (Version 2)
Quarter: 2019Q1

REPORT INFORMATION
  Report Type: Spontaneous
  Country: FR (occurrence: FR)
  Receive Date: 20190216
  Receipt Date: 20190226
  Transmission Date: 20190418
  Serious: Yes (Hospitalization)
  Sender: FDA-Public Use
  Company Number: FR-ACCORD-107448

PATIENT
  Age: 92 Year
  Sex: Female
  Weight: 67.6 kg

DRUGS (8)
  1. EUPRESSYL [Suspect]
     Active Substance: URAPIDIL
     Indication: HYPERTENSION
     Dosage: STRENGTH : 30 MG, 2 DF, DAILY
     Route: 048
  2. LOXEN [NICARDIPINE HYDROCHLORIDE] [Suspect]
     Active Substance: NICARDIPINE HYDROCHLORIDE
     Indication: HYPERTENSION
     Dosage: STRENGTH: 50 MG, 2 DF, DAILY
     Route: 048
     Dates: end: 20180504
  3. ESIDREX [Suspect]
     Active Substance: HYDROCHLOROTHIAZIDE
     Indication: HYPERTENSION
     Dosage: STRENGTH: 25 MG, 1 DF, DAILY
     Route: 048
     Dates: start: 201804, end: 20180504
  4. KARDEGIC [Concomitant]
     Active Substance: ASPIRIN DL-LYSINE
     Indication: PRODUCT USED FOR UNKNOWN INDICATION
  5. MOVICOL [Concomitant]
     Active Substance: POLYETHYLENE GLYCOL 3350\POTASSIUM CHLORIDE\SODIUM BICARBONATE\SODIUM CHLORIDE
     Indication: PRODUCT USED FOR UNKNOWN INDICATION
  6. RILMENIDINE/RILMENIDINE PHOSPHATE [Suspect]
     Active Substance: RILMENIDINE
     Indication: HYPERTENSION
     Dosage: 2 MG, DAILY
     Route: 048
  7. RAMIPRIL. [Suspect]
     Active Substance: RAMIPRIL
     Indication: HYPERTENSION
     Dosage: 5 MG, DAILY
     Route: 048
     Dates: end: 20180504
  8. DIFFU K [Interacting]
     Active Substance: POTASSIUM CHLORIDE
     Indication: HYPOKALAEMIA
     Dosage: 1 DF, DAILY
     Route: 048
     Dates: end: 20180504

REACTIONS (4)
  - Acute kidney injury [Recovered/Resolved]
  - Drug interaction [Unknown]
  - Hyperkalaemia [Recovered/Resolved]
  - Fall [Unknown]

NARRATIVE: CASE EVENT DATE: 20180429
